FAERS Safety Report 5918939-4 (Version None)
Quarter: 2008Q4

REPORT INFORMATION
  Report Type: 
  Country: None (occurrence: None)
  Receive Date: 20081010
  Receipt Date: 20080925
  Transmission Date: 20090506
  Serious: Yes (Other)
  Sender: FDA-Public Use
  Company Number: DSA_32343_2008

PATIENT
  Sex: Female

DRUGS (5)
  1. LORAZEPAM [Suspect]
     Indication: DRUG USE FOR UNKNOWN INDICATION
     Dosage: (1.5 MG QD)
     Dates: start: 20080101, end: 20080101
  2. EFEXOR /01233802/ (EFEXOR - VENLAFAXINE HYDROCHLORIDE) (NOT SPECIFIED) [Suspect]
     Indication: DRUG USE FOR UNKNOWN INDICATION
     Dosage: (150 MG,), (37.5 MG,)
     Dates: end: 20080101
  3. EFEXOR /01233802/ (EFEXOR - VENLAFAXINE HYDROCHLORIDE) (NOT SPECIFIED) [Suspect]
     Indication: DRUG USE FOR UNKNOWN INDICATION
     Dosage: (150 MG,), (37.5 MG,)
     Dates: start: 20080101
  4. SOLIAN (SOLIAN - AMISULPRIDE) (NOT SPECIFIED) [Suspect]
     Indication: DRUG USE FOR UNKNOWN INDICATION
     Dosage: (50 MG,)
     Dates: end: 20080101
  5. TIATRAL /00002701/ (TIATRAL - ACETYLSALICYLIC ACID ) (NOT SPECIFIED) [Suspect]
     Indication: DRUG USE FOR UNKNOWN INDICATION
     Dosage: (100 MG,)

REACTIONS (4)
  - ORAL DISORDER [None]
  - PARESIS [None]
  - SPEECH DISORDER [None]
  - TONGUE DISORDER [None]
